FAERS Safety Report 9190740 (Version 1)
Quarter: 2013Q1

REPORT INFORMATION
  Report Type: Spontaneous
  Country: FR (occurrence: FR)
  Receive Date: 20130326
  Receipt Date: 20130326
  Transmission Date: 20140127
  Serious: Yes (Hospitalization)
  Sender: FDA-Public Use
  Company Number: FR-ASTRAZENECA-2013SE18706

PATIENT
  Age: 26365 Day
  Sex: Female

DRUGS (6)
  1. FASLODEX [Suspect]
     Indication: BREAST CANCER FEMALE
     Route: 030
     Dates: start: 20130122, end: 20130122
  2. ZANIDIP [Concomitant]
  3. COTAREG [Concomitant]
  4. EFFEXOR [Concomitant]
  5. TEMESTA [Concomitant]
  6. ZOLPIDEM [Concomitant]

REACTIONS (1)
  - Idiopathic thrombocytopenic purpura [Recovered/Resolved]
